FAERS Safety Report 21831259 (Version 2)
Quarter: 2023Q1

REPORT INFORMATION
  Report Type: Spontaneous
  Country: US (occurrence: US)
  Receive Date: 20230106
  Receipt Date: 20230109
  Transmission Date: 20230418
  Serious: No
  Sender: FDA-Public Use
  Company Number: US-PFIZER INC-PV202300001971

PATIENT
  Age: 76 Year
  Sex: Female

DRUGS (7)
  1. DEMEROL [Suspect]
     Active Substance: MEPERIDINE HYDROCHLORIDE
     Dosage: UNK
  2. MORPHINE SULFATE [Suspect]
     Active Substance: MORPHINE SULFATE
     Dosage: UNK
  3. CALTRATE [Suspect]
     Active Substance: CALCIUM CARBONATE
     Dosage: UNK
  4. BACTRIM [Suspect]
     Active Substance: SULFAMETHOXAZOLE\TRIMETHOPRIM
     Dosage: UNK
  5. CODEINE [Suspect]
     Active Substance: CODEINE
     Dosage: UNK
  6. GABAPENTIN [Suspect]
     Active Substance: GABAPENTIN
     Dosage: UNK
  7. IRON [Suspect]
     Active Substance: IRON
     Dosage: UNK

REACTIONS (1)
  - Drug hypersensitivity [Unknown]
